FAERS Safety Report 5684427-6 (Version None)
Quarter: 2008Q1

REPORT INFORMATION
  Report Type: 
  Country: None (occurrence: None)
  Receive Date: 20080328
  Receipt Date: 20080320
  Transmission Date: 20080703
  Serious: Yes (Hospitalization)
  Sender: FDA-Public Use
  Company Number: US-JNJFOC-20080204893

PATIENT
  Sex: Male

DRUGS (4)
  1. RISPERDAL [Suspect]
     Indication: DRUG USE FOR UNKNOWN INDICATION
  2. LISDEXAMFETAMINE DIMESYLATE [Suspect]
  3. LISDEXAMFETAMINE DIMESYLATE [Suspect]
     Indication: ATTENTION DEFICIT/HYPERACTIVITY DISORDER
  4. COGENTIN [Concomitant]

REACTIONS (6)
  - AGITATION [None]
  - DEPRESSION [None]
  - HALLUCINATION [None]
  - HOSTILITY [None]
  - PSYCHOTIC DISORDER [None]
  - VIOLENCE-RELATED SYMPTOM [None]
